FAERS Safety Report 6858323-2 (Version None)
Quarter: 2010Q3

REPORT INFORMATION
  Report Type: 
  Country: None (occurrence: None)
  Receive Date: 20100719
  Receipt Date: 20080703
  Transmission Date: 20110219
  Serious: Yes (Hospitalization, Other)
  Sender: FDA-Public Use
  Company Number: US-PFIZER INC-2008011719

PATIENT
  Sex: Male
  Weight: 74 kg

DRUGS (13)
  1. CHANTIX [Suspect]
     Indication: SMOKING CESSATION THERAPY
     Dates: start: 20080101, end: 20080128
  2. ATENOLOL [Concomitant]
     Indication: BLOOD PRESSURE
     Route: 048
  3. ATENOLOL [Concomitant]
     Indication: CARDIAC DISORDER
  4. PLAVIX [Concomitant]
     Indication: BLOOD PRESSURE
     Route: 048
  5. PLAVIX [Concomitant]
     Indication: CARDIAC DISORDER
  6. ACETYLSALICYLIC ACID [Concomitant]
     Indication: BLOOD PRESSURE
     Route: 048
  7. ACETYLSALICYLIC ACID [Concomitant]
     Indication: CARDIAC DISORDER
  8. SIMVASTATIN [Concomitant]
     Indication: BLOOD PRESSURE
     Route: 048
  9. SIMVASTATIN [Concomitant]
     Indication: CARDIAC DISORDER
  10. AMLODIPINE [Concomitant]
     Indication: BLOOD PRESSURE
     Route: 048
  11. AMLODIPINE [Concomitant]
     Indication: CARDIAC DISORDER
  12. COZAAR [Concomitant]
     Indication: BLOOD PRESSURE
     Route: 048
  13. COZAAR [Concomitant]
     Indication: CARDIAC DISORDER

REACTIONS (8)
  - ABNORMAL DREAMS [None]
  - CHEST PAIN [None]
  - DRUG INEFFECTIVE [None]
  - DYSPNOEA [None]
  - FEELING ABNORMAL [None]
  - INSOMNIA [None]
  - SUICIDAL IDEATION [None]
  - THINKING ABNORMAL [None]
